FAERS Safety Report 5399396-6 (Version None)
Quarter: 2007Q3

REPORT INFORMATION
  Report Type: 
  Country: None (occurrence: None)
  Receive Date: 20070727
  Receipt Date: 20070726
  Transmission Date: 20080115
  Serious: Yes (Hospitalization)
  Sender: FDA-Public Use
  Company Number: TW-BRISTOL-MYERS SQUIBB COMPANY-13859020

PATIENT
  Age: 45 Year
  Sex: Female
  Weight: 51 kg

DRUGS (2)
  1. CISPLATIN [Suspect]
     Indication: CERVIX CARCINOMA
     Route: 042
     Dates: start: 20070630, end: 20070630
  2. IRINOTECAN HCL [Suspect]
     Indication: CERVIX CARCINOMA
     Route: 042
     Dates: start: 20070630, end: 20070630

REACTIONS (4)
  - ANAEMIA [None]
  - NEUTROPENIA [None]
  - SYNCOPE [None]
  - VERTIGO [None]
